FAERS Safety Report 4693272-X (Version None)
Quarter: 2005Q2

REPORT INFORMATION
  Report Type: 
  Country: None (occurrence: None)
  Receive Date: 20050617
  Receipt Date: 20050606
  Transmission Date: 20051028
  Serious: Yes (Hospitalization, Other)
  Sender: FDA-Public Use
  Company Number: US-MERCK-0506USA01004

PATIENT
  Age: 62 Year
  Sex: Male

DRUGS (5)
  1. ZOCOR [Suspect]
     Indication: HYPERCHOLESTEROLAEMIA
     Route: 048
  2. ZOCOR [Suspect]
     Indication: HYPERTENSION
     Route: 048
  3. BIAXIN [Concomitant]
     Route: 065
  4. AMOXICILLIN [Concomitant]
     Route: 065
  5. ACIPHEX [Concomitant]
     Route: 065

REACTIONS (2)
  - GALLBLADDER DISORDER [None]
  - RHABDOMYOLYSIS [None]
